FAERS Safety Report 4919202-0 (Version None)
Quarter: 2006Q1

REPORT INFORMATION
  Report Type: 
  Country: None (occurrence: None)
  Receive Date: 20060113
  Receipt Date: 20051205
  Transmission Date: 20060701
  Serious: No
  Sender: FDA-Public Use
  Company Number: 2005SP004265

PATIENT
  Age: 30 Year
  Sex: Female
  Weight: 108.8633 kg

DRUGS (6)
  1. LUNESTA [Suspect]
     Dosage: 3 MG;ORAL
     Route: 048
     Dates: start: 20050801
  2. OXYCONTIN [Concomitant]
  3. OXYCODONE [Concomitant]
  4. TOPAMAX [Concomitant]
  5. EFFEXOR [Concomitant]
  6. ALBUTEROL [Concomitant]

REACTIONS (1)
  - DRY MOUTH [None]
